FAERS Safety Report 5524678-4 (Version None)
Quarter: 2007Q4

REPORT INFORMATION
  Report Type: 
  Country: None (occurrence: None)
  Receive Date: 20071123
  Receipt Date: 20071107
  Transmission Date: 20080405
  Serious: Yes (Other)
  Sender: FDA-Public Use
  Company Number: BR-ROCHE-531824

PATIENT
  Age: 19 Year
  Sex: Male
  Weight: 73 kg

DRUGS (3)
  1. ROACUTAN [Suspect]
     Indication: ACNE
     Dosage: VARIABLE DOSE
     Route: 048
     Dates: start: 20070801, end: 20071001
  2. ROACUTAN [Suspect]
     Dosage: STRENGTH: 20 MG
     Route: 048
     Dates: start: 20071001, end: 20071101
  3. ROACUTAN [Suspect]
     Dosage: STRENGTH: 20 MG
     Route: 048
     Dates: start: 20071101

REACTIONS (4)
  - EOSINOPHILIA [None]
  - HAEMATOLOGY TEST ABNORMAL [None]
  - PLATELET COUNT DECREASED [None]
  - RED CELL DISTRIBUTION WIDTH INCREASED [None]
